FAERS Safety Report 18331426 (Version 1)
Quarter: 2020Q3

REPORT INFORMATION
  Report Type: Report from Study
  Country: US (occurrence: US)
  Receive Date: 20200930
  Receipt Date: 20200930
  Transmission Date: 20201103
  Serious: Yes (Other)
  Sender: FDA-Public Use
  Company Number: US-JNJFOC-20200938023

PATIENT
  Age: 45 Year

DRUGS (1)
  1. SIMPONI [Suspect]
     Active Substance: GOLIMUMAB
     Indication: RHEUMATOID ARTHRITIS
     Dosage: 0.5 (ML MILLILITRE(S) )
     Route: 058
     Dates: start: 20170217

REACTIONS (2)
  - Infection [Unknown]
  - Haemorrhage [Unknown]

NARRATIVE: CASE EVENT DATE: 20200815
